FAERS Safety Report 24417319 (Version 2)
Quarter: 2024Q4

REPORT INFORMATION
  Report Type: Spontaneous
  Country: US (occurrence: US)
  Receive Date: 20241009
  Receipt Date: 20241024
  Transmission Date: 20250114
  Serious: No
  Sender: GRANULES PHARMACEUTICALS INC
  Company Number: US-GRANULES-US-2024GRASPO00438

PATIENT
  Sex: Female

DRUGS (1)
  1. ACETAMINOPHEN [Suspect]
     Active Substance: ACETAMINOPHEN
     Indication: Vertigo
     Route: 065

REACTIONS (3)
  - Pain [Unknown]
  - Drug ineffective for unapproved indication [Unknown]
  - Product substitution issue [Unknown]
